FAERS Safety Report 7565526-0 (Version None)
Quarter: 2011Q2

REPORT INFORMATION
  Report Type: 
  Country: None (occurrence: None)
  Receive Date: 20110623
  Receipt Date: 20070404
  Transmission Date: 20111010
  Serious: No
  Sender: FDA-Public Use
  Company Number: 2007BI007464

PATIENT
  Age: 48 Year
  Sex: Male

DRUGS (2)
  1. TYSABRI [Suspect]
     Indication: MULTIPLE SCLEROSIS
     Route: 042
     Dates: start: 20070125, end: 20070403
  2. TYSABRI [Suspect]
     Route: 042
     Dates: start: 20110614

REACTIONS (12)
  - FATIGUE [None]
  - URTICARIA [None]
  - MUSCULOSKELETAL DISORDER [None]
  - ANXIETY [None]
  - RASH [None]
  - SENSORY DISTURBANCE [None]
  - LIP SWELLING [None]
  - EYE SWELLING [None]
  - DYSPNOEA [None]
  - PARAESTHESIA [None]
  - HYPOAESTHESIA FACIAL [None]
  - HYPERHIDROSIS [None]
